FAERS Safety Report 4623084-4 (Version None)
Quarter: 2005Q1

REPORT INFORMATION
  Report Type: 
  Country: None (occurrence: None)
  Receive Date: 20050328
  Receipt Date: 20050328
  Transmission Date: 20050727
  Serious: Yes (Life-Threatening)
  Sender: FDA-Public Use
  Company Number: None

PATIENT
  Age: 54 Year
  Sex: Male

DRUGS (1)
  1. BACTRIM DS [Suspect]
     Indication: PROSTATITIS
     Dosage: 800/160 BID OROPHARING
     Route: 049
     Dates: start: 20050315, end: 20050417

REACTIONS (3)
  - DYSPHAGIA [None]
  - DYSPNOEA [None]
  - RASH [None]
